FAERS Safety Report 4431799-6 (Version None)
Quarter: 2004Q3

REPORT INFORMATION
  Report Type: 
  Country: None (occurrence: None)
  Receive Date: 20040818
  Receipt Date: 20040803
  Transmission Date: 20050211
  Serious: Yes (Hospitalization)
  Sender: FDA-Public Use
  Company Number: 6009918

PATIENT
  Age: 88 Year
  Sex: Female

DRUGS (5)
  1. LEVOTHYROX 75 (TABLETS) (LEVOTHYROXINE SODIUM) [Suspect]
     Indication: HYPOTHYROIDISM
     Dosage: 75 MCG (75 MCG, 1 IN 1 D) ORAL
     Route: 048
     Dates: start: 20040529
  2. LEVOTHYROX 50 (LEVOTHYROXINE SODIUM) [Suspect]
     Dosage: 50 MCG  (50 MCG, 1 IN 1 D)
     Dates: start: 20040526, end: 20040528
  3. DEDROGYL (SOLUTION) (CALCIFEDIOL) [Suspect]
     Indication: OSTEOPOROSIS
     Dosage: 1 DOSAGE FORMS (1 DOSAGE FORMS, 1 IN 1 D) ORAL
     Route: 048
     Dates: end: 20040528
  4. DOLIPRANE (PARACETAMOL) [Suspect]
     Dosage: 3 DOSAGE FORMS (1 DOSAGE FORMS, 3 IN 1 D)
     Dates: start: 20040525, end: 20040602
  5. CACIT (CITRIC ACID, CALCIUM CARBONATE) [Suspect]
     Indication: OSTEOPOROSIS
     Dosage: 1 DOSAGE FORMS (1 DOSAGE FORMS, 1 IN 1 D) ORAL
     Route: 048
     Dates: start: 20040526, end: 20040602

REACTIONS (2)
  - RASH PAPULAR [None]
  - URTICARIA [None]
